FAERS Safety Report 23340353 (Version 4)
Quarter: 2025Q3

REPORT INFORMATION
  Report Type: Report from Study
  Country: GB (occurrence: GB)
  Receive Date: 20231227
  Receipt Date: 20250919
  Transmission Date: 20251021
  Serious: Yes (Hospitalization, Other)
  Sender: EXELIXIS
  Company Number: GB-EXELIXIS-CABO-21040235

PATIENT
  Age: 28 Year
  Sex: Female
  Weight: 50 kg

DRUGS (4)
  1. CABOMETYX [Suspect]
     Active Substance: CABOZANTINIB S-MALATE
     Indication: Osteosarcoma metastatic
     Dosage: 60 MG, QD
     Route: 048
     Dates: start: 20210518
  2. CABOMETYX [Suspect]
     Active Substance: CABOZANTINIB S-MALATE
     Indication: Off label use
     Dosage: 40 MG, QD
     Route: 048
  3. CABOMETYX [Suspect]
     Active Substance: CABOZANTINIB S-MALATE
     Route: 048
     Dates: end: 20221028
  4. THYROXIMNE [Concomitant]

REACTIONS (19)
  - Gastrointestinal toxicity [Unknown]
  - Haemoptysis [Unknown]
  - Pericardial effusion [Unknown]
  - Dyspnoea [Unknown]
  - Thrombocytopenia [Unknown]
  - Hypothyroidism [Unknown]
  - Proteinuria [Not Recovered/Not Resolved]
  - Pneumothorax [Recovered/Resolved]
  - Trismus [Not Recovered/Not Resolved]
  - Lower respiratory tract infection [Unknown]
  - Radiation pneumonitis [Unknown]
  - Bradycardia [Unknown]
  - Respiratory tract infection viral [Unknown]
  - Product prescribing issue [Unknown]
  - Inappropriate schedule of product administration [Unknown]
  - Off label use [Unknown]
  - Inappropriate schedule of product administration [Unknown]
  - Product dose omission issue [Unknown]
  - Inappropriate schedule of product administration [Unknown]

NARRATIVE: CASE EVENT DATE: 20220601
